FAERS Safety Report 9925131 (Version 1)
Quarter: 2014Q1

REPORT INFORMATION
  Report Type: Spontaneous
  Country: US (occurrence: None)
  Receive Date: 20140225
  Receipt Date: 20140225
  Transmission Date: 20141002
  Serious: Yes (Hospitalization, Disabling, Other)
  Sender: FDA-Public Use
  Company Number: None

PATIENT
  Age: 42 Year
  Sex: Male
  Weight: 90.72 kg

DRUGS (1)
  1. ANDROGEL [Suspect]
     Dosage: 5 PUMPS ONCE DAILY APPLIED TO A SURFACE, USUALLY THE SKIN
     Dates: start: 20110218, end: 20110222

REACTIONS (2)
  - Spinal cord infarction [None]
  - Paralysis [None]
